FAERS Safety Report 17012355 (Version 1)
Quarter: 2019Q4

REPORT INFORMATION
  Report Type: Spontaneous
  Country: PL (occurrence: PL)
  Receive Date: 20191108
  Receipt Date: 20191108
  Transmission Date: 20200122
  Serious: Yes (Other)
  Sender: FDA-Public Use
  Company Number: PL-US-PROVELL PHARMACEUTICALS LLC-9126135

PATIENT
  Sex: Female

DRUGS (2)
  1. EUTHYROX [Suspect]
     Active Substance: LEVOTHYROXINE SODIUM
     Indication: HYPOTHYROIDISM
     Dosage: UNKNOWN DOSE
  2. EUTHYROX [Suspect]
     Active Substance: LEVOTHYROXINE SODIUM
     Dosage: THE DOSAGE WAS AGAIN A BIT DECREASED (UNSPECIFIED)

REACTIONS (4)
  - Maternal exposure during pregnancy [Recovered/Resolved]
  - Blood thyroid stimulating hormone increased [Unknown]
  - Abortion spontaneous [Recovered/Resolved]
  - Blood thyroid stimulating hormone decreased [Unknown]
